FAERS Safety Report 25320266 (Version 3)
Quarter: 2025Q3

REPORT INFORMATION
  Report Type: Spontaneous
  Country: EU (occurrence: EU)
  Receive Date: 20250515
  Receipt Date: 20250712
  Transmission Date: 20251021
  Serious: Yes (Life-Threatening, Hospitalization)
  Sender: IPSEN BIOPHARMACEUTICALS, INC.
  Company Number: EU-IPSEN Group, Research and Development-2025-11281

PATIENT
  Age: 66 Year
  Sex: Female
  Weight: 57 kg

DRUGS (7)
  1. DYSPORT [Suspect]
     Active Substance: ABOBOTULINUMTOXINA
     Indication: Muscle spasticity
     Dates: start: 20230209
  2. DYSPORT [Suspect]
     Active Substance: ABOBOTULINUMTOXINA
     Dates: start: 20250306
  3. PONVORY [Concomitant]
     Active Substance: PONESIMOD
     Dates: start: 2024
  4. DULOXETINE [Concomitant]
     Active Substance: DULOXETINE
     Dates: start: 2024
  5. ACTONEL [Concomitant]
     Active Substance: RISEDRONATE SODIUM
     Dates: start: 2024
  6. DALFAMPRIDINE [Concomitant]
     Active Substance: DALFAMPRIDINE
     Dates: start: 2024
  7. GABAPENTIN [Concomitant]
     Active Substance: GABAPENTIN
     Dates: start: 2024

REACTIONS (2)
  - Neuromuscular toxicity [Recovering/Resolving]
  - Off label use [Unknown]

NARRATIVE: CASE EVENT DATE: 20250324
